FAERS Safety Report 7803851-6 (Version None)
Quarter: 2011Q4

REPORT INFORMATION
  Report Type: 
  Country: None (occurrence: None)
  Receive Date: 20111010
  Receipt Date: 20110928
  Transmission Date: 20120403
  Serious: No
  Sender: FDA-Public Use
  Company Number: US-JNJFOC-20111000038

PATIENT
  Sex: Male
  Weight: 81.65 kg

DRUGS (3)
  1. DURAGESIC-100 [Suspect]
     Indication: BACK PAIN
     Dosage: 100MCG+25MCG EVERY 48 HOURS
     Route: 062
     Dates: start: 20070101
  2. DURAGESIC-100 [Suspect]
     Indication: NECK PAIN
     Dosage: 100MCG+25MCG EVERY 48 HOURS
     Route: 062
     Dates: start: 20070101
  3. DURAGESIC-100 [Suspect]
     Indication: PAIN IN EXTREMITY
     Dosage: 100MCG+25MCG EVERY 48 HOURS
     Route: 062
     Dates: start: 20070101

REACTIONS (1)
  - WRONG TECHNIQUE IN DRUG USAGE PROCESS [None]
